FAERS Safety Report 5823585-7 (Version None)
Quarter: 2008Q3

REPORT INFORMATION
  Report Type: 
  Country: None (occurrence: None)
  Receive Date: 20080725
  Receipt Date: 20080715
  Transmission Date: 20090109
  Serious: Yes (Hospitalization, Other)
  Sender: FDA-Public Use
  Company Number: US-PFIZER INC-2004230207US

PATIENT
  Sex: Female
  Weight: 96.15 kg

DRUGS (7)
  1. CELEBREX [Suspect]
     Indication: OSTEOARTHRITIS
     Route: 048
  2. AVANDIA [Concomitant]
     Indication: DIABETES MELLITUS
  3. GLUCOTROL XL [Concomitant]
     Indication: DIABETES MELLITUS
  4. GLUCOPHAGE [Concomitant]
     Indication: DIABETES MELLITUS
  5. HYZAAR [Concomitant]
  6. ZYRTEC [Concomitant]
     Route: 048
  7. COREG [Concomitant]
     Indication: HYPERTENSION
     Route: 048

REACTIONS (5)
  - ARTHRALGIA [None]
  - BURSITIS [None]
  - HIP ARTHROPLASTY [None]
  - HYPERTENSION [None]
  - JOINT INJURY [None]
